FAERS Safety Report 9392176 (Version 1)
Quarter: 2013Q3

REPORT INFORMATION
  Report Type: Spontaneous
  Country: GB (occurrence: GB)
  Receive Date: 20130710
  Receipt Date: 20130710
  Transmission Date: 20140515
  Serious: Yes (Disabling)
  Sender: FDA-Public Use
  Company Number: GB-JNJFOC-20130703126

PATIENT
  Age: 39 Year
  Sex: Female
  Weight: 56 kg

DRUGS (1)
  1. NICORETTE GUM [Suspect]
     Indication: SMOKING CESSATION THERAPY
     Route: 048
     Dates: start: 2009, end: 20130618

REACTIONS (11)
  - Nicotine dependence [Unknown]
  - Anxiety [Unknown]
  - Peripheral coldness [Unknown]
  - Dental caries [Unknown]
  - Flatulence [Recovering/Resolving]
  - Alopecia [Not Recovered/Not Resolved]
  - Disturbance in attention [Not Recovered/Not Resolved]
  - Poor peripheral circulation [Recovering/Resolving]
  - Psoriasis [Not Recovered/Not Resolved]
  - Tooth abscess [Recovered/Resolved with Sequelae]
  - Intentional drug misuse [Unknown]
